FAERS Safety Report 8399227-6 (Version None)
Quarter: 2012Q2

REPORT INFORMATION
  Report Type: 
  Country: None (occurrence: None)
  Receive Date: 20120531
  Receipt Date: 20120529
  Transmission Date: 20120825
  Serious: Yes (Hospitalization)
  Sender: FDA-Public Use
  Company Number: US-GLAXOSMITHKLINE-A0979320A

PATIENT
  Age: 69 Year
  Sex: Female

DRUGS (9)
  1. SINGULAIR [Concomitant]
  2. ADVIL PM [Concomitant]
  3. ROFLUMILAST [Suspect]
     Indication: CHRONIC OBSTRUCTIVE PULMONARY DISEASE
     Route: 065
  4. OXYCODONE HYDROCHLORIDE [Concomitant]
  5. ARTIFICIAL TEARS [Concomitant]
  6. DOXEPIN HCL [Concomitant]
  7. TRAMADOL HCL [Concomitant]
  8. ADVAIR DISKUS 100/50 [Suspect]
     Indication: CHRONIC OBSTRUCTIVE PULMONARY DISEASE
     Dosage: 1PUFF TWICE PER DAY
     Route: 055
     Dates: start: 20070101
  9. XANAX [Concomitant]

REACTIONS (4)
  - FEELING HOT [None]
  - WEIGHT INCREASED [None]
  - PNEUMONIA [None]
  - DIZZINESS [None]
